FAERS Safety Report 5506318-3 (Version None)
Quarter: 2007Q4

REPORT INFORMATION
  Report Type: 
  Country: None (occurrence: None)
  Receive Date: 20071105
  Receipt Date: 20071026
  Transmission Date: 20080405
  Serious: Yes (Other)
  Sender: FDA-Public Use
  Company Number: HQWYE289321JUL04

PATIENT
  Sex: Female
  Weight: 90.8 kg

DRUGS (1)
  1. PREMPRO [Suspect]
     Indication: HORMONE REPLACEMENT THERAPY
     Dosage: UNKNOWN
     Dates: start: 19981101, end: 20000615

REACTIONS (3)
  - BREAST CANCER [None]
  - HEART RATE IRREGULAR [None]
  - THROMBOSIS [None]
